FAERS Safety Report 6665620-2 (Version None)
Quarter: 2010Q2

REPORT INFORMATION
  Report Type: 
  Country: None (occurrence: None)
  Receive Date: 20100402
  Receipt Date: 20100326
  Transmission Date: 20101027
  Serious: Yes (Hospitalization)
  Sender: FDA-Public Use
  Company Number: JP-ELI_LILLY_AND_COMPANY-JP201003007882

PATIENT
  Weight: 2.72 kg

DRUGS (2)
  1. HUMALOG [Suspect]
     Indication: PANCREATOGENOUS DIABETES
     Dosage: UNK, 3/D, BEFORE MEAL
     Route: 064
     Dates: start: 20071121, end: 20080604
  2. HUMALOG [Suspect]
     Dosage: UNK, 3/D, BEFORE MEAL
     Route: 063
     Dates: start: 20080101

REACTIONS (3)
  - DRUG EXPOSURE DURING PREGNANCY [None]
  - DRUG EXPOSURE VIA BREAST MILK [None]
  - TRANSIENT TACHYPNOEA OF THE NEWBORN [None]
